FAERS Safety Report 5113925-9 (Version None)
Quarter: 2006Q3

REPORT INFORMATION
  Report Type: 
  Country: None (occurrence: None)
  Receive Date: 20060921
  Receipt Date: 20060918
  Transmission Date: 20061208
  Serious: Yes (Death, Other)
  Sender: FDA-Public Use
  Company Number: 163-21880-06060475

PATIENT
  Age: 78 Year
  Sex: Male

DRUGS (13)
  1. REVLIMID [Suspect]
     Indication: MULTIPLE MYELOMA
     Dosage: 5 MG, 1 IN 1 D, ORAL                    CAPSULES
     Route: 048
     Dates: start: 20060508, end: 20060525
  2. ARANESP [Concomitant]
  3. KCL (POSSIUM CHLORIDE) [Concomitant]
  4. DEMADEX [Concomitant]
  5. PROZAC [Concomitant]
  6. COUMADIN [Concomitant]
  7. TOPROL-XL [Concomitant]
  8. ATROVENT [Concomitant]
  9. XOPENEX [Concomitant]
  10. COLCHICUM JTL LIQ [Concomitant]
  11. LIPITOR [Concomitant]
  12. LISINOPRIL [Concomitant]
  13. PROSCAR [Concomitant]

REACTIONS (2)
  - DISEASE PROGRESSION [None]
  - MULTIPLE MYELOMA [None]
